FAERS Safety Report 6468862-4 (Version None)
Quarter: 2009Q4

REPORT INFORMATION
  Report Type: 
  Country: None (occurrence: None)
  Receive Date: 20091203
  Receipt Date: 20071210
  Transmission Date: 20100525
  Serious: Yes (Hospitalization, Other)
  Sender: FDA-Public Use
  Company Number: US-ELI_LILLY_AND_COMPANY-US200612003553

PATIENT
  Sex: Female

DRUGS (5)
  1. FORTEO [Suspect]
     Indication: OSTEOPOROSIS
     Dosage: UNK, UNK
     Dates: start: 20050801, end: 20061101
  2. FORTEO [Suspect]
     Dates: start: 20070101
  3. CALCIUM [Concomitant]
     Indication: MINERAL SUPPLEMENTATION
  4. VITAMIN D [Concomitant]
  5. CLONAZEPAM [Concomitant]

REACTIONS (15)
  - AFFECT LABILITY [None]
  - ANIMAL BITE [None]
  - ANXIETY [None]
  - BLOOD PRESSURE INADEQUATELY CONTROLLED [None]
  - BLOOD PRESSURE INCREASED [None]
  - FATIGUE [None]
  - FRUSTRATION [None]
  - GASTROINTESTINAL HAEMORRHAGE [None]
  - GASTROINTESTINAL INFECTION [None]
  - GENERAL PHYSICAL HEALTH DETERIORATION [None]
  - INSOMNIA [None]
  - PANIC ATTACK [None]
  - SKIN DISCOLOURATION [None]
  - SKIN INFECTION [None]
  - SUICIDAL IDEATION [None]
